FAERS Safety Report 18388026 (Version 1)
Quarter: 2020Q4

REPORT INFORMATION
  Report Type: Report from Study
  Country: GB (occurrence: GB)
  Receive Date: 20201015
  Receipt Date: 20201015
  Transmission Date: 20210114
  Serious: Yes (Other)
  Sender: FDA-Public Use
  Company Number: GB-SAMSUNG BIOEPIS-SB-2020-31580

PATIENT
  Sex: Female

DRUGS (1)
  1. IMRALDI [Suspect]
     Active Substance: ADALIMUMAB
     Indication: PSORIATIC ARTHROPATHY
     Route: 058
     Dates: start: 20200211

REACTIONS (6)
  - Fatigue [Unknown]
  - COVID-19 [Unknown]
  - Hyperhidrosis [Unknown]
  - Varicella [Unknown]
  - Headache [Unknown]
  - Psoriatic arthropathy [Unknown]
